FAERS Safety Report 5088987-8 (Version None)
Quarter: 2006Q3

REPORT INFORMATION
  Report Type: 
  Country: None (occurrence: None)
  Receive Date: 20060825
  Receipt Date: 20060821
  Transmission Date: 20061208
  Serious: Yes (Other)
  Sender: FDA-Public Use
  Company Number: PHNR2006AU01059

PATIENT

DRUGS (4)
  1. ZOMETA [Suspect]
     Indication: MULTIPLE MYELOMA
     Route: 065
  2. PAMIDRONATE DISODIUM [Concomitant]
     Route: 065
  3. ANTIBIOTICS [Concomitant]
     Route: 065
  4. STEROIDS NOS [Concomitant]
     Route: 065

REACTIONS (4)
  - IMPAIRED HEALING [None]
  - OSTEONECROSIS [None]
  - SECRETION DISCHARGE [None]
  - TOOTH LOSS [None]
